FAERS Safety Report 9036165 (Version 1)
Quarter: 2013Q1

REPORT INFORMATION
  Report Type: Spontaneous
  Country: DK (occurrence: None)
  Receive Date: 20130116
  Receipt Date: 20130116
  Transmission Date: 20140127
  Serious: Yes (Hospitalization)
  Sender: FDA-Public Use
  Company Number: 2013MA000356

PATIENT
  Age: 73 Year
  Sex: Male

DRUGS (6)
  1. BUTALBITAL, ASPIRIN AND CAFFEINE TABLETS USP, 50 MG/325 MG/40 MG (PUREPAC) (BUTALBITAL W/ASPIRIN, CAFFEINE) [Suspect]
     Indication: ESSENTIAL THROMBOCYTHAEMIA
     Route: 048
     Dates: start: 20000628, end: 20100708
  2. HYDROXYUREA (HYDROXYCARBAMIDE) [Suspect]
     Indication: ESSENTIAL THROMBOCYTHAEMIA
     Route: 048
     Dates: start: 20090921, end: 20091102
  3. ASASANTIN (ASASANTIN) [Suspect]
     Indication: ESSENTIAL THROMBOCYTHAEMIA
     Route: 048
     Dates: start: 20030127, end: 20090921
  4. ANAGRELIDE (ANAGRELIDE) [Suspect]
     Indication: ESSENTIAL THROMBOCYTHAEMIA
     Route: 048
     Dates: start: 20000628, end: 20090921
  5. DANAZOL [Concomitant]
  6. CITALOPRAM [Concomitant]

REACTIONS (15)
  - Cardiomegaly [None]
  - Pericardial effusion [None]
  - Cardiac failure [None]
  - Oedema [None]
  - Fluid overload [None]
  - Effusion [None]
  - Cerebrovascular accident [None]
  - Drug intolerance [None]
  - Adverse event [None]
  - Myelofibrosis [None]
  - Anaemia [None]
  - General physical health deterioration [None]
  - Sepsis [None]
  - Acute myeloid leukaemia [None]
  - Congestive cardiomyopathy [None]
